FAERS Safety Report 7875601-9 (Version None)
Quarter: 2011Q4

REPORT INFORMATION
  Report Type: 
  Country: None (occurrence: None)
  Receive Date: 20111031
  Receipt Date: 20111017
  Transmission Date: 20120403
  Serious: Yes (Other)
  Sender: FDA-Public Use
  Company Number: CA-ELI_LILLY_AND_COMPANY-CA201108004123

PATIENT
  Sex: Female
  Weight: 54.422 kg

DRUGS (15)
  1. ASCORBIC ACID [Concomitant]
  2. BACLOFEN [Concomitant]
  3. FORTEO [Suspect]
     Dosage: 20 UG, QD
     Dates: start: 20110920
  4. CALCIUM [Concomitant]
  5. METHOTREXATE [Concomitant]
  6. VITAMIN D [Concomitant]
  7. VITAMIN B COMPLEX CAP [Concomitant]
  8. FORTEO [Suspect]
     Indication: OSTEOPOROSIS
     Dosage: 20 UG, QD
     Route: 058
     Dates: start: 20101222, end: 20110808
  9. RANITIDINE [Concomitant]
  10. FERROUS SULFATE TAB [Concomitant]
  11. ARTHROTEC [Concomitant]
  12. MAGNESIUM [Concomitant]
  13. LOVAZA [Concomitant]
  14. ENBREL [Concomitant]
  15. TYLENOL                                 /SCH/ [Concomitant]

REACTIONS (2)
  - BREAST CANCER [None]
  - ASTHENIA [None]
